FAERS Safety Report 20150086 (Version 3)
Quarter: 2022Q3

REPORT INFORMATION
  Report Type: Spontaneous
  Country: US (occurrence: US)
  Receive Date: 20211206
  Receipt Date: 20220704
  Transmission Date: 20221026
  Serious: Yes (Hospitalization, Other)
  Sender: FDA-Public Use
  Company Number: US-GILEAD-2021-0557126

PATIENT
  Age: 55 Year
  Sex: Male
  Weight: 79.37 kg

DRUGS (34)
  1. VIREAD [Suspect]
     Active Substance: TENOFOVIR DISOPROXIL FUMARATE
     Indication: HIV infection
     Dosage: UNK
     Route: 048
     Dates: start: 2015
  2. VIREAD [Suspect]
     Active Substance: TENOFOVIR DISOPROXIL FUMARATE
     Dosage: UNK
     Route: 048
     Dates: start: 2017, end: 2017
  3. TRUVADA [Suspect]
     Active Substance: EMTRICITABINE\TENOFOVIR DISOPROXIL FUMARATE
     Indication: HIV infection
     Dosage: UNK
     Route: 048
     Dates: start: 2015
  4. TRUVADA [Suspect]
     Active Substance: EMTRICITABINE\TENOFOVIR DISOPROXIL FUMARATE
     Dosage: UNK
     Route: 048
     Dates: start: 201202, end: 2017
  5. BIKTARVY [Concomitant]
     Active Substance: BICTEGRAVIR SODIUM\EMTRICITABINE\TENOFOVIR ALAFENAMIDE FUMARATE
  6. DESCOVY [Concomitant]
     Active Substance: EMTRICITABINE\TENOFOVIR ALAFENAMIDE FUMARATE
  7. JULUCA [Concomitant]
     Active Substance: DOLUTEGRAVIR SODIUM\RILPIVIRINE HYDROCHLORIDE
  8. LEXIVA [Concomitant]
     Active Substance: FOSAMPRENAVIR CALCIUM
  9. NORVIR [Concomitant]
     Active Substance: RITONAVIR
  10. PREZCOBIX [Concomitant]
     Active Substance: COBICISTAT\DARUNAVIR ETHANOLATE
  11. PREZISTA [Concomitant]
     Active Substance: DARUNAVIR ETHANOLATE
  12. SUSTIVA [Concomitant]
     Active Substance: EFAVIRENZ
  13. TIVICAY [Concomitant]
     Active Substance: DOLUTEGRAVIR SODIUM
  14. CIALIS [Concomitant]
     Active Substance: TADALAFIL
  15. ZINC [Concomitant]
     Active Substance: ZINC
  16. VITAMINS [Concomitant]
     Active Substance: VITAMINS
  17. ASPIRIN [Concomitant]
     Active Substance: ASPIRIN
  18. ZITHROMAX [Concomitant]
     Active Substance: AZITHROMYCIN DIHYDRATE
  19. ROCEPHIN [Concomitant]
     Active Substance: CEFTRIAXONE SODIUM
  20. ULTRAM [Concomitant]
     Active Substance: TRAMADOL HYDROCHLORIDE
  21. ZANAFLEX [Concomitant]
     Active Substance: TIZANIDINE HYDROCHLORIDE
  22. SYNTHROID [Concomitant]
     Active Substance: LEVOTHYROXINE SODIUM
  23. GABAPENTIN [Concomitant]
     Active Substance: GABAPENTIN
  24. TENORMIN [Concomitant]
     Active Substance: ATENOLOL
  25. LYRICA [Concomitant]
     Active Substance: PREGABALIN
  26. FLAGYL [Concomitant]
     Active Substance: METRONIDAZOLE\METRONIDAZOLE HYDROCHLORIDE
  27. FAMOTIDINE [Concomitant]
     Active Substance: FAMOTIDINE
  28. ACIDOPHILUS [Concomitant]
     Active Substance: LACTOBACILLUS ACIDOPHILUS
  29. VICODIN [Concomitant]
     Active Substance: ACETAMINOPHEN\HYDROCODONE BITARTRATE
  30. RANITIDINE HYDROCHLORIDE [Concomitant]
     Active Substance: RANITIDINE HYDROCHLORIDE
  31. NORCO [Concomitant]
     Active Substance: ACETAMINOPHEN\HYDROCODONE BITARTRATE
  32. CLOTRIMAZOLE [Concomitant]
     Active Substance: CLOTRIMAZOLE
  33. FLOMAX [Concomitant]
     Active Substance: TAMSULOSIN HYDROCHLORIDE
  34. SAW PALMETTO BERRY [Concomitant]

REACTIONS (18)
  - Chronic kidney disease [Not Recovered/Not Resolved]
  - Renal injury [Unknown]
  - Renal failure [Unknown]
  - Acute kidney injury [Recovered/Resolved]
  - Emotional distress [Unknown]
  - Pneumonia [Recovered/Resolved]
  - Pneumonia [Recovered/Resolved]
  - Anhedonia [Unknown]
  - Anxiety [Unknown]
  - Pain [Unknown]
  - Osteopenia [Not Recovered/Not Resolved]
  - Urinary tract infection [Not Recovered/Not Resolved]
  - Insomnia [Not Recovered/Not Resolved]
  - Pollakiuria [Not Recovered/Not Resolved]
  - Bone pain [Not Recovered/Not Resolved]
  - Patella fracture [Unknown]
  - Weight increased [Unknown]
  - Depression [Not Recovered/Not Resolved]

NARRATIVE: CASE EVENT DATE: 20150101
